FAERS Safety Report 6959133-8 (Version None)
Quarter: 2010Q3

REPORT INFORMATION
  Report Type: 
  Country: None (occurrence: None)
  Receive Date: 20100831
  Receipt Date: 20100818
  Transmission Date: 20110219
  Serious: Yes (Other)
  Sender: FDA-Public Use
  Company Number: US-ELI_LILLY_AND_COMPANY-US201007001298

PATIENT
  Sex: Female

DRUGS (8)
  1. FORTEO [Suspect]
     Indication: OSTEOPOROSIS
     Dosage: 20 UG, DAILY (1/D)
     Dates: start: 20100504
  2. ARTHROTEC [Concomitant]
  3. SOTALOL [Concomitant]
  4. VYTORIN [Concomitant]
  5. CALTRATE [Concomitant]
  6. CENTRUM SILVER [Concomitant]
  7. VITAMIN D [Concomitant]
  8. COUMADIN [Concomitant]

REACTIONS (6)
  - ARTHROPATHY [None]
  - CONTUSION [None]
  - HEADACHE [None]
  - HIP FRACTURE [None]
  - MYALGIA [None]
  - PHOTOSENSITIVITY REACTION [None]
